FAERS Safety Report 7215036-5 (Version None)
Quarter: 2011Q1

REPORT INFORMATION
  Report Type: 
  Country: None (occurrence: None)
  Receive Date: 20110107
  Receipt Date: 20100719
  Transmission Date: 20110831
  Serious: No
  Sender: FDA-Public Use
  Company Number: A0871143A

PATIENT
  Age: 86 Year
  Sex: Female

DRUGS (4)
  1. ATENOLOL [Concomitant]
  2. HYDREA [Concomitant]
  3. LOVAZA [Suspect]
     Dosage: 1CAP TWICE PER DAY
     Route: 048
     Dates: start: 20100715, end: 20100716
  4. MULTIVITAMIN [Concomitant]

REACTIONS (4)
  - ABDOMINAL DISCOMFORT [None]
  - NAUSEA [None]
  - ERUCTATION [None]
  - DIARRHOEA [None]
